FAERS Safety Report 5042898-2 (Version None)
Quarter: 2006Q3

REPORT INFORMATION
  Report Type: 
  Country: None (occurrence: None)
  Receive Date: 20060705
  Receipt Date: 20060626
  Transmission Date: 20061208
  Serious: Yes (Hospitalization)
  Sender: FDA-Public Use
  Company Number: FR-ROCHE-453045

PATIENT
  Age: 59 Year
  Sex: Male
  Weight: 120 kg

DRUGS (7)
  1. LOXEN LP [Suspect]
     Indication: HYPERTENSION
     Route: 048
  2. CORTANCYL [Suspect]
     Indication: DRUG USE FOR UNKNOWN INDICATION
     Route: 048
  3. OLMESARTAN MEDOXOMIL [Suspect]
     Indication: HYPERTENSION
     Route: 048
  4. ARANESP [Suspect]
     Indication: DRUG USE FOR UNKNOWN INDICATION
     Route: 058
     Dates: end: 20060218
  5. NEULASTA [Concomitant]
     Dates: end: 20060218
  6. CYCLOPHOSPHAMIDE [Concomitant]
  7. ONCOVIN [Concomitant]
     Dosage: DRUG REPORTED AS ^ONCOVIN (VINCRISTINE SULPHATE)^

REACTIONS (3)
  - ACUTE CORONARY SYNDROME [None]
  - ANAEMIA [None]
  - PULMONARY EMBOLISM [None]
